FAERS Safety Report 5507233-1 (Version None)
Quarter: 2007Q4

REPORT INFORMATION
  Report Type: 
  Country: None (occurrence: None)
  Receive Date: 20071105
  Receipt Date: 20071105
  Transmission Date: 20080405
  Serious: Yes (Hospitalization)
  Sender: FDA-Public Use
  Company Number: None

PATIENT
  Sex: Female
  Weight: 45.1 kg

DRUGS (5)
  1. CYCLOPHOSPHAMIDE [Suspect]
     Dosage: 1750 MG
  2. DACTINOMYCIN [Suspect]
     Dosage: 2 MG
  3. G-CSF (FILGRASTIM, AMGEN) [Suspect]
     Dosage: 300 MG
  4. MESNA [Suspect]
     Dosage: 1750 MG
  5. VINCRISTINE SULFATE [Concomitant]
     Dosage: 2 MG

REACTIONS (6)
  - CLOSTRIDIUM DIFFICILE COLITIS [None]
  - FEBRILE NEUTROPENIA [None]
  - INDURATION [None]
  - MUSCULOSKELETAL PAIN [None]
  - PERINEAL ABSCESS [None]
  - SOFT TISSUE NECROSIS [None]
